FAERS Safety Report 10518242 (Version 1)
Quarter: 2014Q4

REPORT INFORMATION
  Report Type: Spontaneous
  Country: FI (occurrence: FI)
  Receive Date: 20141015
  Receipt Date: 20141015
  Transmission Date: 20150528
  Serious: Yes (Hospitalization)
  Sender: FDA-Public Use
  Company Number: FI-PFIZER INC-2014278080

PATIENT
  Age: 70 Year
  Sex: Female

DRUGS (7)
  1. PANACOD [Concomitant]
     Active Substance: ACETAMINOPHEN\CODEINE PHOSPHATE
     Dosage: 1X0-3/DAY, SOMETIMES
  2. TOVIAZ [Suspect]
     Active Substance: FESOTERODINE FUMARATE
     Dosage: 8 MG, 1X/DAY
     Route: 048
     Dates: start: 20140724, end: 20140828
  3. VAGIFEM [Concomitant]
     Active Substance: ESTRADIOL
     Dosage: 10 (UNITS NOT PROVIDED) 2X/WEEK
  4. PANADOL [Concomitant]
     Active Substance: ACETAMINOPHEN
     Dosage: 1 G, 1-3/DAY, NOT DAILY
  5. CALCICHEW D3 FORTE [Concomitant]
     Active Substance: CALCIUM\CHOLECALCIFEROL
     Dosage: UNK, 1X/DAY
  6. TOVIAZ [Suspect]
     Active Substance: FESOTERODINE FUMARATE
     Indication: HYPERTONIC BLADDER
     Dosage: 4 MG, UNK
     Route: 048
  7. TRIPTYL [Concomitant]
     Active Substance: AMITRIPTYLINE HYDROCHLORIDE
     Dosage: 50 MG, 1X/DAY IN THE EVENINGS

REACTIONS (8)
  - Retching [Unknown]
  - Drug effect incomplete [Unknown]
  - Nausea [Unknown]
  - Red blood cell sedimentation rate increased [Unknown]
  - Abdominal discomfort [Unknown]
  - Faecal calprotectin increased [Unknown]
  - C-reactive protein increased [Unknown]
  - Diarrhoea [Recovered/Resolved]

NARRATIVE: CASE EVENT DATE: 2014
